FAERS Safety Report 20468385 (Version 1)
Quarter: 2022Q1

REPORT INFORMATION
  Report Type: Spontaneous
  Country: US (occurrence: None)
  Receive Date: 20220211
  Receipt Date: 20220211
  Transmission Date: 20220423
  Serious: Yes (Disabling, Other)
  Sender: FDA-Public Use
  Company Number: None

PATIENT
  Age: 43 Year
  Sex: Female

DRUGS (1)
  1. ELIQUIS [Suspect]
     Active Substance: APIXABAN
     Indication: Jugular vein thrombosis
     Dosage: OTHER QUANTITY : 2 TABLET(S);?FREQUENCY : TWICE A DAY;?
     Route: 048
     Dates: start: 20200901, end: 20220201

REACTIONS (6)
  - Emotional disorder [None]
  - Mental disorder [None]
  - Immune system disorder [None]
  - Stress [None]
  - Anger [None]
  - Product quality issue [None]

NARRATIVE: CASE EVENT DATE: 20220201
